FAERS Safety Report 10447393 (Version 2)
Quarter: 2014Q3

REPORT INFORMATION
  Report Type: Spontaneous
  Country: US (occurrence: US)
  Receive Date: 20140911
  Receipt Date: 20140911
  Transmission Date: 20150326
  Serious: No
  Sender: FDA-Public Use
  Company Number: US-BEH-2012031572

PATIENT
  Age: 58 Year
  Sex: Female
  Weight: 77 kg

DRUGS (12)
  1. NORMAL SALINE [Concomitant]
     Active Substance: SODIUM CHLORIDE
  2. PRILOSEC [Concomitant]
     Active Substance: OMEPRAZOLE MAGNESIUM
  3. ALBUTEROL. [Concomitant]
     Active Substance: ALBUTEROL
  4. ZEMAIRA [Suspect]
     Active Substance: .ALPHA.1-PROTEINASE INHIBITOR HUMAN
     Indication: BRONCHITIS CHRONIC
     Dosage: 988 MG/20 ML VIAL MAX. RATE= 0.08 ML/KG/MIN (6.5 ML/MIN); START DATE 2008
     Route: 042
  5. LOSARTAN [Concomitant]
     Active Substance: LOSARTAN
  6. SODIUM CHLORIDE. [Concomitant]
     Active Substance: SODIUM CHLORIDE
  7. SPIRIVA [Concomitant]
     Active Substance: TIOTROPIUM BROMIDE MONOHYDRATE
  8. ZEMAIRA [Suspect]
     Active Substance: .ALPHA.1-PROTEINASE INHIBITOR HUMAN
     Indication: ALPHA-1 ANTI-TRYPSIN DEFICIENCY
     Dosage: 988 MG/20 ML VIAL MAX. RATE= 0.08 ML/KG/MIN (6.5 ML/MIN); START DATE 2008
     Route: 042
  9. OXYGEN. [Concomitant]
     Active Substance: OXYGEN
  10. SYMBICORT [Concomitant]
     Active Substance: BUDESONIDE\FORMOTEROL FUMARATE DIHYDRATE
  11. NORVASC [Concomitant]
     Active Substance: AMLODIPINE BESYLATE
  12. AFRIN [Concomitant]
     Active Substance: OXYMETAZOLINE

REACTIONS (4)
  - Musculoskeletal chest pain [Unknown]
  - Off label use [Unknown]
  - Muscle tightness [Unknown]
  - Chest pain [Unknown]

NARRATIVE: CASE EVENT DATE: 2008
